FAERS Safety Report 5944552-9 (Version None)
Quarter: 2008Q4

REPORT INFORMATION
  Report Type: 
  Country: None (occurrence: None)
  Receive Date: 20081107
  Receipt Date: 20081029
  Transmission Date: 20090506
  Serious: Yes (Congenital Anomaly)
  Sender: FDA-Public Use
  Company Number: JP-NOVOPROD-280032

PATIENT
  Age: 1 Year
  Sex: Female

DRUGS (3)
  1. NOVORAPID CHU FLEXPEN [Suspect]
     Indication: TYPE 1 DIABETES MELLITUS
     Route: 064
  2. NOVOLIN N [Suspect]
     Indication: TYPE 1 DIABETES MELLITUS
     Route: 064
  3. NOVOLIN R [Suspect]
     Indication: TYPE 1 DIABETES MELLITUS
     Route: 064

REACTIONS (1)
  - CONGENITAL CYSTIC KIDNEY DISEASE [None]
